FAERS Safety Report 4633847-7 (Version None)
Quarter: 2005Q1

REPORT INFORMATION
  Report Type: 
  Country: None (occurrence: None)
  Receive Date: 20050325
  Receipt Date: 20050127
  Transmission Date: 20050727
  Serious: No
  Sender: FDA-Public Use
  Company Number: USA041285776

PATIENT
  Age: 60 Year
  Sex: Female

DRUGS (2)
  1. FORTEO [Suspect]
     Indication: OSTEOPOROSIS
     Dates: start: 20041204
  2. VITAMIN D [Concomitant]

REACTIONS (8)
  - ASTHENIA [None]
  - CONSTIPATION [None]
  - FOOD AVERSION [None]
  - ILL-DEFINED DISORDER [None]
  - NAUSEA [None]
  - PRURITUS [None]
  - THROAT IRRITATION [None]
  - VOMITING [None]
